FAERS Safety Report 6218537-1 (Version None)
Quarter: 2009Q2

REPORT INFORMATION
  Report Type: 
  Country: None (occurrence: None)
  Receive Date: 20090604
  Receipt Date: 20090604
  Transmission Date: 20091009
  Serious: Yes (Other)
  Sender: FDA-Public Use
  Company Number: None

PATIENT
  Age: 29 Year
  Sex: Male
  Weight: 79.3795 kg

DRUGS (1)
  1. COZAAR [Suspect]
     Indication: HYPERTENSION
     Dosage: ONCE DAILY PO
     Route: 048
     Dates: start: 20090602, end: 20090602

REACTIONS (3)
  - ARTHRALGIA [None]
  - DIZZINESS [None]
  - HEADACHE [None]
